FAERS Safety Report 16618089 (Version 2)
Quarter: 2019Q3

REPORT INFORMATION
  Report Type: Spontaneous
  Country: US (occurrence: US)
  Receive Date: 20190723
  Receipt Date: 20190723
  Transmission Date: 20191004
  Serious: No
  Sender: FDA-Public Use
  Company Number: US-GALDERMA-US19042732

PATIENT
  Age: 54 Year
  Sex: Female

DRUGS (6)
  1. PROACTIV MD DAILY OIL CONTROL SPF 30 [Suspect]
     Active Substance: AVOBENZONE\OCTISALATE\OCTOCRYLENE
     Indication: HIRSUTISM
     Route: 061
     Dates: start: 20181114, end: 20181210
  2. PROACTIV MD ADAPALENE ACNE TREATMENT [Suspect]
     Active Substance: ADAPALENE
     Indication: HIRSUTISM
     Dosage: 0.1%
     Route: 061
     Dates: start: 20181114, end: 20181210
  3. PROACTIV MD DEEP CLEANSING FACE WASH [Concomitant]
     Active Substance: COSMETICS
     Indication: HIRSUTISM
     Route: 061
     Dates: start: 20181114, end: 20181210
  4. PROACTIV GREEN TEA MOISTURIZER [Concomitant]
     Active Substance: COSMETICS
     Indication: HIRSUTISM
     Route: 061
     Dates: start: 20181114, end: 20181210
  5. PROACTIV EYE BRIGHTENING SERUM [Concomitant]
     Active Substance: COSMETICS
     Indication: HIRSUTISM
     Route: 061
     Dates: start: 20181114, end: 20181210
  6. PROACTIV MD BALANCING TONER [Concomitant]
     Active Substance: COSMETICS
     Indication: HIRSUTISM
     Route: 061
     Dates: start: 20181114, end: 20181210

REACTIONS (6)
  - Skin hyperpigmentation [Recovered/Resolved]
  - Skin irritation [Recovered/Resolved]
  - Hirsutism [Recovered/Resolved]
  - Acne [Recovered/Resolved]
  - Rash [Recovered/Resolved]
  - Product use in unapproved indication [Recovered/Resolved]

NARRATIVE: CASE EVENT DATE: 20181114
